FAERS Safety Report 7270223-5 (Version None)
Quarter: 2011Q1

REPORT INFORMATION
  Report Type: 
  Country: None (occurrence: None)
  Receive Date: 20110202
  Receipt Date: 20110127
  Transmission Date: 20110831
  Serious: Yes (Hospitalization, Other)
  Sender: FDA-Public Use
  Company Number: DE-US-EMD SERONO, INC.-7036117

PATIENT
  Sex: Male
  Weight: 12 kg

DRUGS (1)
  1. SAIZEN [Suspect]
     Indication: GROWTH HORMONE DEFICIENCY
     Route: 058
     Dates: start: 20100506, end: 20100615

REACTIONS (4)
  - MOVEMENT DISORDER [None]
  - PAIN IN EXTREMITY [None]
  - OSTEOMYELITIS CHRONIC [None]
  - BONE MARROW OEDEMA [None]
